FAERS Safety Report 4824724-7 (Version None)
Quarter: 2005Q4

REPORT INFORMATION
  Report Type: 
  Country: None (occurrence: None)
  Receive Date: 20051014
  Receipt Date: 20050701
  Transmission Date: 20060501
  Serious: Yes (Hospitalization)
  Sender: FDA-Public Use
  Company Number: 2005SP001698

PATIENT
  Age: 45 Year
  Sex: Female

DRUGS (9)
  1. LUNESTA [Suspect]
     Dosage: 1X; ORAL
     Route: 048
     Dates: start: 20050630, end: 20050630
  2. ALCOHOL [Suspect]
     Dosage: 1X
     Dates: start: 20050630
  3. AMLODIPINE [Concomitant]
  4. PREVACID [Concomitant]
  5. LEXAPRO [Concomitant]
  6. NAPROXEN [Concomitant]
  7. ADALAT [Concomitant]
  8. VALSARTAN [Concomitant]
  9. EFFEXOR XR [Concomitant]

REACTIONS (2)
  - INTENTIONAL DRUG MISUSE [None]
  - SOMNOLENCE [None]
